FAERS Safety Report 16332565 (Version 2)
Quarter: 2019Q2

REPORT INFORMATION
  Report Type: Spontaneous
  Country: US (occurrence: US)
  Receive Date: 20190520
  Receipt Date: 20190625
  Transmission Date: 20190711
  Serious: No
  Sender: FDA-Public Use
  Company Number: US-PFIZER INC-2019208369

PATIENT
  Age: 61 Year
  Sex: Female

DRUGS (6)
  1. SULFASALAZINE. [Suspect]
     Active Substance: SULFASALAZINE
     Dosage: UNK
  2. LISINOPRIL. [Suspect]
     Active Substance: LISINOPRIL
     Dosage: UNK
  3. BACTRIM [Suspect]
     Active Substance: SULFAMETHOXAZOLE\TRIMETHOPRIM
     Dosage: UNK
  4. SYNERCID [Suspect]
     Active Substance: DALFOPRISTIN\QUINUPRISTIN
     Dosage: UNK
  5. CUBICIN [Suspect]
     Active Substance: DAPTOMYCIN
     Dosage: UNK
  6. HIBICLENS [Suspect]
     Active Substance: CHLORHEXIDINE GLUCONATE
     Dosage: UNK

REACTIONS (2)
  - Drug hypersensitivity [Unknown]
  - Rash [Unknown]
